FAERS Safety Report 5086722-0 (Version None)
Quarter: 2006Q3

REPORT INFORMATION
  Report Type: 
  Country: None (occurrence: None)
  Receive Date: 20060823
  Receipt Date: 20060818
  Transmission Date: 20061208
  Serious: Yes (Hospitalization)
  Sender: FDA-Public Use
  Company Number: PHRM2006FR02353

PATIENT
  Age: 87 Year
  Sex: Male
  Weight: 78 kg

DRUGS (6)
  1. FUROSEMIDE [Suspect]
     Dosage: 20 MG/DAY
     Route: 048
  2. COVERSYL [Suspect]
     Dosage: 2 MG/DAY
     Route: 048
  3. AMLODIPINE BESYLATE [Suspect]
     Dosage: 5 MG/DAY
     Route: 048
  4. HEMIGOXINE NATIVELLE [Concomitant]
     Dosage: 3 DF, QW
     Route: 048
  5. SERETIDE [Concomitant]
     Dosage: 2 DF/DAY
     Route: 048
  6. NITRODERM [Suspect]
     Dosage: UNK, UNK
     Route: 062

REACTIONS (6)
  - CHEST DISCOMFORT [None]
  - DRUG INTERACTION [None]
  - FALL [None]
  - HYPOTENSION [None]
  - INJURY [None]
  - PYREXIA [None]
